FAERS Safety Report 4713082-4 (Version None)
Quarter: 2005Q3

REPORT INFORMATION
  Report Type: 
  Country: None (occurrence: None)
  Receive Date: 20050713
  Receipt Date: 20050701
  Transmission Date: 20060218
  Serious: Yes (Other)
  Sender: FDA-Public Use
  Company Number: PHNU2005DE02437

PATIENT
  Sex: Male

DRUGS (2)
  1. ZOMETA [Suspect]
     Indication: MULTIPLE MYELOMA
     Dosage: 4 MG, QMO
     Route: 042
     Dates: start: 20020101
  2. SALINE [Concomitant]
     Dosage: 100 ML, QMO
     Route: 042
     Dates: start: 20020101

REACTIONS (4)
  - BONE DISORDER [None]
  - FISTULA [None]
  - OSTEOLYSIS [None]
  - X-RAY ABNORMAL [None]
